FAERS Safety Report 19350682 (Version 2)
Quarter: 2021Q2

REPORT INFORMATION
  Report Type: Report from Study
  Country: ES (occurrence: ES)
  Receive Date: 20210531
  Receipt Date: 20210609
  Transmission Date: 20210717
  Serious: Yes (Other)
  Sender: FDA-Public Use
  Company Number: ES-ROCHE-2823358

PATIENT
  Age: 75 Year
  Sex: Female
  Weight: 46.5 kg

DRUGS (14)
  1. EBASTINE [Concomitant]
     Active Substance: EBASTINE
     Indication: DERMATITIS ACNEIFORM
     Route: 048
     Dates: start: 20210331
  2. ENOXAPARIN [Concomitant]
     Active Substance: ENOXAPARIN
     Indication: ATRIAL FIBRILLATION
     Route: 058
     Dates: start: 201907
  3. SIMVASTATIN. [Concomitant]
     Active Substance: SIMVASTATIN
     Indication: HYPERCHOLESTEROLAEMIA
     Route: 048
     Dates: start: 20160202
  4. BETAHISTINE [Concomitant]
     Active Substance: BETAHISTINE
     Indication: DIZZINESS
     Route: 048
     Dates: start: 20210219, end: 20210407
  5. ATEZOLIZUMAB. [Suspect]
     Active Substance: ATEZOLIZUMAB
     Indication: OVARIAN CANCER RECURRENT
     Dosage: ON 28/APR/2021, SHE RECIEVED THE MOST RECENT DOSE OF ATEZOLIZUMAB (840 MG) PRIOR TO AE/SAE?ON 13/MAY
     Route: 041
     Dates: start: 20210316
  6. NIRAPARIB [Suspect]
     Active Substance: NIRAPARIB
     Indication: OVARIAN CANCER RECURRENT
     Dosage: ON 28/APR/2021, SHE RECIEVED THE MOST RECENT DOSE OF NIRAPARIB (200 MG) PRIOR TO AE/SAE?ON 25/MAY/20
     Route: 048
     Dates: start: 20210317
  7. OMEPRAZOLE. [Concomitant]
     Active Substance: OMEPRAZOLE
     Indication: GASTROINTESTINAL DISORDER PROPHYLAXIS
     Dosage: GIVEN FOR PROPHYLAXIS
     Route: 048
     Dates: start: 202002
  8. NISTATIN [Concomitant]
     Active Substance: NYSTATIN
     Indication: STOMATITIS
     Route: 048
     Dates: start: 20210412
  9. CLOBETASOL [Concomitant]
     Active Substance: CLOBETASOL
     Dates: start: 20210427
  10. NAPROXEN. [Concomitant]
     Active Substance: NAPROXEN
     Indication: PYREXIA
     Route: 048
     Dates: start: 20210412
  11. CLINDAMICIN [Concomitant]
     Active Substance: CLINDAMYCIN
     Indication: DERMATITIS ACNEIFORM
     Route: 061
     Dates: start: 20210329, end: 20210426
  12. ESPIRONOLACTONA [Concomitant]
     Active Substance: SPIRONOLACTONE
     Indication: PYREXIA
     Route: 048
     Dates: start: 20210412
  13. FUROSEMIDE. [Concomitant]
     Active Substance: FUROSEMIDE
     Indication: OEDEMA PERIPHERAL
     Route: 048
     Dates: start: 20210429, end: 20210509
  14. COBIMETINIB. [Suspect]
     Active Substance: COBIMETINIB
     Indication: OVARIAN CANCER RECURRENT
     Dosage: ON 27/APR/2021, SHE RECIEVED THE MOST RECENT DOSE OF COBIMETINIB (60 MG) PRIOR TO AE/SAE?ON 25/MAY/2
     Route: 048
     Dates: start: 20210317

REACTIONS (2)
  - Anaemia [Not Recovered/Not Resolved]
  - Rash maculo-papular [Recovered/Resolved]

NARRATIVE: CASE EVENT DATE: 20210429
